FAERS Safety Report 8418138-0 (Version None)
Quarter: 2012Q2

REPORT INFORMATION
  Report Type: 
  Country: None (occurrence: None)
  Receive Date: 20120607
  Receipt Date: 20120529
  Transmission Date: 20120825
  Serious: Yes (Other)
  Sender: FDA-Public Use
  Company Number: US-US-EMD SERONO, INC.-7136628

PATIENT
  Sex: Female

DRUGS (2)
  1. REBIF [Suspect]
     Indication: MULTIPLE SCLEROSIS
     Route: 058
     Dates: start: 20040823
  2. ACETAMINOPHEN [Concomitant]
     Indication: PREMEDICATION

REACTIONS (6)
  - MUSCLE SPASMS [None]
  - PAIN [None]
  - LOSS OF CONSCIOUSNESS [None]
  - GAIT DISTURBANCE [None]
  - WEIGHT DECREASED [None]
  - INCONTINENCE [None]
